FAERS Safety Report 14554415 (Version 1)
Quarter: 2018Q1

REPORT INFORMATION
  Report Type: Spontaneous
  Country: US (occurrence: US)
  Receive Date: 20180217
  Receipt Date: 20180217
  Transmission Date: 20180509
  Serious: Yes (Disabling, Other)
  Sender: FDA-Public Use
  Company Number: None

PATIENT
  Weight: 63 kg

DRUGS (1)
  1. ZOLOFT [Suspect]
     Active Substance: SERTRALINE HYDROCHLORIDE
     Indication: MOOD SWINGS
     Route: 048
     Dates: start: 20140301, end: 20170831

REACTIONS (12)
  - Abnormal behaviour [None]
  - Aggression [None]
  - Suicidal ideation [None]
  - Amenorrhoea [None]
  - Anxiety [None]
  - Muscular weakness [None]
  - Thinking abnormal [None]
  - Anger [None]
  - Dysstasia [None]
  - Inappropriate affect [None]
  - Drug withdrawal syndrome [None]
  - Motor dysfunction [None]
